FAERS Safety Report 8495847 (Version 3)
Quarter: 2013Q1

REPORT INFORMATION
  Report Type: Spontaneous
  Country: GB (occurrence: None)
  Receive Date: 20120329
  Receipt Date: 20130123
  Transmission Date: 20140127
  Serious: Yes (Hospitalization)
  Sender: FDA-Public Use
  Company Number: GB-023541

PATIENT
  Age: 66 Year
  Sex: Female

DRUGS (18)
  1. CHLORAMBUCIL [Suspect]
     Indication: CHRONIC LYMPHOCYTIC LEUKAEMIA
     Dosage: 16 MG, 16 MG QD, ORAL
     Route: 048
     Dates: start: 20101105
  2. RITUXIMAB [Suspect]
     Indication: CHRONIC LYMPHOCYTIC LEUKAEMIA
     Dosage: INTRAVENOUS (NOT OTHERWISE SPECIFIED)
     Route: 042
     Dates: start: 20101105
  3. AMLODIPINE (AMLODIPINE) (UNKNOWN) [Concomitant]
  4. ASPIRIN (ACETYLSALICYLIC ACID) (UNKNOWN) (ACETYLSALICYLIC ACID) [Concomitant]
  5. FUROSEMIDE (FUROSEMIDE) (UNKNOWN) [Concomitant]
  6. BECLOMETHASONE (BECLOMETASONE) (UNKNOWN) [Concomitant]
  7. DOXAZOSIN (DOXAZOSIN) (UNKNOWN) [Concomitant]
  8. SODIUM BICARBONATE (SODIUM BICARBONATE) (UNKNOWN) [Concomitant]
  9. ATENOLOL (ATENOLOL) (UNKNOWN) [Concomitant]
  10. OMEPRAZOLE (OMEPRAZOLE) (UNKNOWN) [Concomitant]
  11. CO-TRIMOXAZOLE (SULFAMETHOXAZOLE AND TRIMETHOPRIM) (UNKNOWN) [Concomitant]
  12. ACICLOVIR (ACICLOVIR) (UNKNOWN) [Concomitant]
  13. HYDROCORTISONE (HYDROCORTISONE) (CREAM) [Concomitant]
  14. LOPERAMIDE (LOPERAMIDE) (UNKNOWN) [Concomitant]
  15. CEFALEXIN (CEFALEXIN) (UNKNOWN) [Concomitant]
  16. ZOLPIDEM TRATRATE (ZOLPIDEM) (UNKNOWN) [Concomitant]
  17. CO-CODAMOL (PARACETAMOL, COMBINATIONS EXCL. PSYCHOLEPTICS) (UNKNOWN) [Concomitant]
  18. SALBUTAMOL (SALBUTAMOL) (UNKNOWN) [Concomitant]

REACTIONS (4)
  - Vomiting [None]
  - Blood creatine increased [None]
  - Disease recurrence [None]
  - Nephrotic syndrome [None]
